FAERS Safety Report 9390843 (Version 11)
Quarter: 2014Q1

REPORT INFORMATION
  Report Type: Spontaneous
  Country: IE (occurrence: IE)
  Receive Date: 20130709
  Receipt Date: 20140321
  Transmission Date: 20141002
  Serious: Yes (Hospitalization, Other)
  Sender: FDA-Public Use
  Company Number: PHFR2013IE002805

PATIENT
  Age: 55 Year
  Sex: Female
  Weight: 53.61 kg

DRUGS (15)
  1. CLOZARIL [Suspect]
     Indication: SCHIZOPHRENIA
     Dosage: 200 MG, QHS
     Route: 048
     Dates: start: 20010701, end: 20130221
  2. CLOZARIL [Suspect]
     Dosage: UNK
     Route: 048
     Dates: start: 20130902
  3. ESOMEPRAZOLE [Concomitant]
     Dosage: 40 MG, QD
  4. ESOMEPRAZOLE [Concomitant]
     Dosage: 20 MG, QD
     Route: 048
  5. OLANZAPINE [Concomitant]
     Dosage: 5 MG, QD
  6. OLANZAPINE [Concomitant]
     Dosage: 25 MG, (5 MG MANE, 20 MG NOCTE)
  7. EPILIM CHRONO [Concomitant]
     Dosage: 700 MG, BID
     Dates: end: 20130221
  8. EPILIM CHRONO [Concomitant]
     Dosage: 600 MG, BID
     Route: 048
  9. PROCYCLIDINE [Concomitant]
     Dosage: 5 MG, BID
     Dates: end: 20130221
  10. ZOLPIDEM [Concomitant]
     Dosage: 10 MG, NOCTE
  11. OXYBUTYNIN XL [Concomitant]
     Indication: DYSGEUSIA
     Dosage: 5 MG, QD
     Dates: end: 20130221
  12. APO-FOLIC ACID [Concomitant]
     Dosage: 5 MG, QD
     Route: 048
  13. QUETIAPINE [Concomitant]
     Dosage: 25 MG, NOCTE
     Route: 048
  14. TEMAZEPAM [Concomitant]
     Dosage: 10 MG, NOCTE
     Route: 048
  15. KEMADRIN [Concomitant]
     Dosage: 5 MG, BID

REACTIONS (13)
  - Decreased appetite [Recovered/Resolved]
  - Weight decreased [Recovered/Resolved]
  - Duodenal ulcer [Recovered/Resolved]
  - Bronchiectasis [Not Recovered/Not Resolved]
  - Depression [Recovering/Resolving]
  - Haemoglobin decreased [Not Recovered/Not Resolved]
  - Dysgeusia [Recovered/Resolved]
  - Sleep disorder [Not Recovered/Not Resolved]
  - Anxiety [Not Recovered/Not Resolved]
  - Mood swings [Recovered/Resolved]
  - White blood cell count increased [Recovered/Resolved]
  - Neutrophil count increased [Recovered/Resolved]
  - Platelet count increased [Not Recovered/Not Resolved]
